FAERS Safety Report 16369117 (Version 3)
Quarter: 2020Q3

REPORT INFORMATION
  Report Type: Report from Study
  Country: US (occurrence: US)
  Receive Date: 20190529
  Receipt Date: 20200911
  Transmission Date: 20201102
  Serious: Yes (Death, Hospitalization, Other)
  Sender: FDA-Public Use
  Company Number: US-ARIAD PHARMACEUTICALS, INC-2017US008921

PATIENT
  Age: 52 Year
  Sex: Female

DRUGS (8)
  1. PONATINIB [Suspect]
     Active Substance: PONATINIB
     Dosage: 15 MILLIGRAM, QD
     Route: 048
     Dates: start: 20170623
  2. VITAMIN D                          /00107901/ [Concomitant]
     Active Substance: ERGOCALCIFEROL
     Dosage: UNK
     Route: 065
  3. CHOLESTEROL [Concomitant]
     Active Substance: CHOLESTEROL
     Dosage: UNK
     Route: 065
  4. MULTIVITAMIN                       /00097801/ [Concomitant]
     Active Substance: VITAMINS
     Dosage: UNK
     Route: 065
  5. VITAMIN B12 [Concomitant]
     Active Substance: CYANOCOBALAMIN
     Dosage: UNK
     Route: 065
  6. THYROID [Concomitant]
     Active Substance: LEVOTHYROXINE\LIOTHYRONINE
     Dosage: UNK
     Route: 065
  7. PONATINIB [Suspect]
     Active Substance: PONATINIB
     Indication: CHRONIC MYELOID LEUKAEMIA
     Dosage: 30 MILLIGRAM, QD
     Route: 048
     Dates: start: 20170601, end: 20170614
  8. PONATINIB [Suspect]
     Active Substance: PONATINIB
     Dosage: 15 MILLIGRAM, QD
     Route: 048

REACTIONS (31)
  - Contusion [Unknown]
  - Headache [Not Recovered/Not Resolved]
  - Nausea [Unknown]
  - Skin mass [Unknown]
  - Marrow hyperplasia [Unknown]
  - Poor quality sleep [Unknown]
  - Neutropenia [Unknown]
  - Neck pain [Unknown]
  - Dyspnoea exertional [Not Recovered/Not Resolved]
  - Osteoarthritis [Unknown]
  - Skin exfoliation [Unknown]
  - Blood alkaline phosphatase increased [Unknown]
  - Thrombocytopenia [Unknown]
  - Leukopenia [Not Recovered/Not Resolved]
  - Palpitations [Unknown]
  - Neuropathy peripheral [Unknown]
  - Death [Fatal]
  - Obesity [Unknown]
  - Fatigue [Not Recovered/Not Resolved]
  - Anaemia [Recovered/Resolved]
  - Gait disturbance [Unknown]
  - Rash [Unknown]
  - Tachycardia [Unknown]
  - Dry skin [Unknown]
  - Heart rate irregular [Unknown]
  - Weight increased [Unknown]
  - Arthralgia [Unknown]
  - Pain in extremity [Unknown]
  - Neutrophil count decreased [Not Recovered/Not Resolved]
  - Vomiting [Unknown]
  - Bone pain [Unknown]

NARRATIVE: CASE EVENT DATE: 201706
